FAERS Safety Report 11580043 (Version 1)
Quarter: 2015Q3

REPORT INFORMATION
  Report Type: Spontaneous
  Country: US (occurrence: US)
  Receive Date: 20150930
  Receipt Date: 20150930
  Transmission Date: 20151125
  Serious: Yes (Other)
  Sender: FDA-Public Use
  Company Number: US-ABBVIE-15P-163-1471534-00

PATIENT
  Sex: Male

DRUGS (1)
  1. ANDROGEL [Suspect]
     Active Substance: TESTOSTERONE
     Indication: ANDROGEN REPLACEMENT THERAPY
     Route: 065
     Dates: start: 20100505, end: 20141001

REACTIONS (10)
  - Loss of employment [Unknown]
  - Deep vein thrombosis [Unknown]
  - Myocardial infarction [Unknown]
  - Fear [Unknown]
  - Social problem [Unknown]
  - Physical disability [Unknown]
  - Cardiovascular disorder [Unknown]
  - Anhedonia [Unknown]
  - Economic problem [Unknown]
  - Injury [Unknown]

NARRATIVE: CASE EVENT DATE: 20130925
